FAERS Safety Report 16062880 (Version 3)
Quarter: 2019Q2

REPORT INFORMATION
  Report Type: Spontaneous
  Country: GR (occurrence: GR)
  Receive Date: 20190312
  Receipt Date: 20190412
  Transmission Date: 20190711
  Serious: Yes (Other)
  Sender: FDA-Public Use
  Company Number: GR-PFIZER INC-2019107515

PATIENT
  Age: 81 Year
  Sex: Male

DRUGS (3)
  1. TIGECYCLINE. [Suspect]
     Active Substance: TIGECYCLINE
     Indication: MENINGITIS BACTERIAL
     Dosage: 100 MG, 2X/DAY
     Route: 042
  2. TIGECYCLINE. [Suspect]
     Active Substance: TIGECYCLINE
     Indication: SALVAGE THERAPY
     Dosage: 4 MG/DAILY DISSOLVED IN 5 ML OF 0.9% NAC
     Route: 033
  3. TMP-SMX [Suspect]
     Active Substance: SULFAMETHOXAZOLE\TRIMETHOPRIM
     Indication: MENINGITIS BACTERIAL
     Dosage: UNK, (15MG/KG BW)

REACTIONS (4)
  - Drug resistance [Unknown]
  - Renal impairment [Unknown]
  - Product use issue [Unknown]
  - Thrombocytopenia [Recovering/Resolving]
